FAERS Safety Report 24054002 (Version 3)
Quarter: 2025Q3

REPORT INFORMATION
  Report Type: Spontaneous
  Country: ZA (occurrence: ZA)
  Receive Date: 20240705
  Receipt Date: 20250802
  Transmission Date: 20251020
  Serious: Yes (Hospitalization)
  Sender: ALEXION PHARMACEUTICALS
  Company Number: 2024A150079

PATIENT
  Age: 25 Year
  Sex: Female

DRUGS (10)
  1. BUDESONIDE\FORMOTEROL [Suspect]
     Active Substance: BUDESONIDE\FORMOTEROL
  2. Optisulin [Concomitant]
  3. APIDRA [Concomitant]
     Active Substance: INSULIN GLULISINE
  4. Stopayne [Concomitant]
  5. Sinucon [Concomitant]
  6. Adco linctopent [Concomitant]
  7. Ibupain [Concomitant]
  8. CLARITHROMYCIN [Concomitant]
     Active Substance: CLARITHROMYCIN
  9. MUPIROCIN [Concomitant]
     Active Substance: MUPIROCIN
  10. LEVALBUTEROL HYDROCHLORIDE [Concomitant]
     Active Substance: LEVALBUTEROL HYDROCHLORIDE

REACTIONS (2)
  - Blood glucose increased [Unknown]
  - Wheezing [Unknown]
